FAERS Safety Report 5317549-X (Version None)
Quarter: 2007Q2

REPORT INFORMATION
  Report Type: 
  Country: None (occurrence: None)
  Receive Date: 20070507
  Receipt Date: 20070426
  Transmission Date: 20071010
  Serious: Yes (Hospitalization, Other)
  Sender: FDA-Public Use
  Company Number: PHEH2007US06399

PATIENT
  Age: 43 Year

DRUGS (6)
  1. ZELNORM [Suspect]
     Indication: IRRITABLE BOWEL SYNDROME
  2. HYDROXYZINE [Concomitant]
  3. DILTIAZEM [Concomitant]
  4. ASPIRIN [Concomitant]
  5. ZOCOR [Concomitant]
  6. FEMRING [Concomitant]

REACTIONS (1)
  - MYOCARDIAL INFARCTION [None]
